FAERS Safety Report 20359831 (Version 2)
Quarter: 2022Q3

REPORT INFORMATION
  Report Type: Report from Study
  Country: CA (occurrence: CA)
  Receive Date: 20220121
  Receipt Date: 20220825
  Transmission Date: 20221027
  Serious: Yes (Death)
  Sender: FDA-Public Use
  Company Number: CA-ABBVIE-22K-028-4243171-00

PATIENT
  Age: 66 Year
  Sex: Male

DRUGS (2)
  1. HUMIRA [Suspect]
     Active Substance: ADALIMUMAB
     Indication: Psoriasis
     Route: 058
     Dates: start: 20150824
  2. HUMIRA [Suspect]
     Active Substance: ADALIMUMAB
     Route: 058

REACTIONS (3)
  - Death [Fatal]
  - Illness [Unknown]
  - Epistaxis [Unknown]

NARRATIVE: CASE EVENT DATE: 20220101
